FAERS Safety Report 5129926-0 (Version None)
Quarter: 2006Q4

REPORT INFORMATION
  Report Type: 
  Country: None (occurrence: None)
  Receive Date: 20061013
  Receipt Date: 20061010
  Transmission Date: 20070319
  Serious: Yes (Other)
  Sender: FDA-Public Use
  Company Number: 148510USA

PATIENT
  Age: 46 Year
  Sex: Female

DRUGS (1)
  1. PIMOZIDE [Suspect]
     Indication: DRUG USE FOR UNKNOWN INDICATION
     Dosage: 40 MG ORAL
     Route: 048
     Dates: start: 20060928, end: 20060928

REACTIONS (2)
  - FATIGUE [None]
  - INTENTIONAL DRUG MISUSE [None]
